FAERS Safety Report 4985759-7 (Version None)
Quarter: 2006Q2

REPORT INFORMATION
  Report Type: 
  Country: None (occurrence: None)
  Receive Date: 20060421
  Receipt Date: 20060410
  Transmission Date: 20061013
  Serious: Yes (Hospitalization, Other)
  Sender: FDA-Public Use
  Company Number: 2006050690

PATIENT
  Age: 62 Year
  Sex: Female

DRUGS (4)
  1. CABERGOLINE [Suspect]
     Indication: ILL-DEFINED DISORDER
     Dosage: 4 MG, ORAL
     Route: 048
  2. L-DOPA (LEVODOPA) [Suspect]
     Indication: ILL-DEFINED DISORDER
     Dosage: 600 MG, ORAL
     Route: 048
  3. SELEGILINE (SELEGILINE) [Suspect]
     Indication: ILL-DEFINED DISORDER
     Dosage: 10 MG, ORAL
     Route: 048
  4. ZONISAMIDE [Suspect]
     Indication: ILL-DEFINED DISORDER
     Dosage: 100 MG, ORAL
     Route: 048

REACTIONS (24)
  - ABNORMAL BEHAVIOUR [None]
  - AFFECT LABILITY [None]
  - AGITATION [None]
  - AKINESIA [None]
  - AMNESIA [None]
  - BLOOD CREATINE PHOSPHOKINASE INCREASED [None]
  - BRADYPHRENIA [None]
  - CATATONIA [None]
  - CONDITION AGGRAVATED [None]
  - DELUSION [None]
  - FEELING GUILTY [None]
  - GENITAL BURNING SENSATION [None]
  - HALLUCINATION, VISUAL [None]
  - HYPOPROTEINAEMIA [None]
  - INCOHERENT [None]
  - MUSCLE RIGIDITY [None]
  - MUTISM [None]
  - NEGATIVISM [None]
  - NEUROLEPTIC MALIGNANT SYNDROME [None]
  - PARKINSON'S DISEASE [None]
  - PSYCHOTIC DISORDER [None]
  - PYREXIA [None]
  - STARING [None]
  - STEREOTYPY [None]
